FAERS Safety Report 5220599-5 (Version None)
Quarter: 2007Q1

REPORT INFORMATION
  Report Type: 
  Country: None (occurrence: None)
  Receive Date: 20070125
  Receipt Date: 20070125
  Transmission Date: 20070707
  Serious: Yes (Hospitalization)
  Sender: FDA-Public Use
  Company Number: None

PATIENT
  Sex: Female
  Weight: 70.3075 kg

DRUGS (4)
  1. ALPRAZOLAM [Suspect]
     Indication: SURGERY
     Dosage: 0.25 MG PO
     Route: 048
     Dates: start: 20060421
  2. COLACE [Concomitant]
  3. FLEXERIL [Concomitant]
  4. OXYCODONE HCL [Concomitant]

REACTIONS (3)
  - DIZZINESS [None]
  - HYPOAESTHESIA [None]
  - PRURITUS [None]
